FAERS Safety Report 11788850 (Version 1)
Quarter: 2015Q4

REPORT INFORMATION
  Report Type: Spontaneous
  Country: US (occurrence: None)
  Receive Date: 20151130
  Receipt Date: 20151130
  Transmission Date: 20160305
  Serious: Yes (Life-Threatening)
  Sender: FDA-Public Use
  Company Number: None

PATIENT
  Age: 49 Year
  Sex: Female
  Weight: 50.35 kg

DRUGS (2)
  1. BENADRYL [Concomitant]
     Active Substance: DIPHENHYDRAMINE HYDROCHLORIDE
  2. CEFDINIR 300 MG CAPSULES [Suspect]
     Active Substance: CEFDINIR
     Indication: EAR INFECTION
     Route: 048
     Dates: start: 20151121, end: 20151122

REACTIONS (6)
  - Swelling face [None]
  - Lymph node pain [None]
  - Urticaria [None]
  - Abdominal distension [None]
  - Lymphadenopathy [None]
  - Peripheral swelling [None]

NARRATIVE: CASE EVENT DATE: 20151122
